FAERS Safety Report 8612480-6 (Version None)
Quarter: 2012Q3

REPORT INFORMATION
  Report Type: 
  Country: None (occurrence: None)
  Receive Date: 20120822
  Receipt Date: 20120816
  Transmission Date: 20120928
  Serious: Yes (Hospitalization)
  Sender: FDA-Public Use
  Company Number: DE-FRI-1000037841

PATIENT
  Sex: Female

DRUGS (1)
  1. MEMANTINE HCL [Suspect]
     Dosage: 17 TABLETS OVER 3 DAYS (340 MG)
     Route: 048

REACTIONS (3)
  - DRUG ABUSE [None]
  - SLEEP DISORDER [None]
  - RESTLESSNESS [None]
